FAERS Safety Report 24228534 (Version 1)
Quarter: 2024Q3

REPORT INFORMATION
  Report Type: Spontaneous
  Country: US (occurrence: None)
  Receive Date: 20240820
  Receipt Date: 20240820
  Transmission Date: 20241017
  Serious: No
  Sender: ASTRAZENECA
  Company Number: 2024A168441

PATIENT
  Sex: Female

DRUGS (2)
  1. CALQUENCE [Suspect]
     Active Substance: ACALABRUTINIB
     Dosage: ONE TABLET DAILY
     Route: 048
     Dates: end: 202401
  2. CALQUENCE [Suspect]
     Active Substance: ACALABRUTINIB
     Dosage: ONE TABLET DAILY AT NIGHT AND EVERY OTHER DAY AN ADDITIONAL ONE TABLE IN THE MORNING
     Route: 048
     Dates: start: 202401

REACTIONS (2)
  - Upper respiratory tract infection [Unknown]
  - Gastrointestinal disorder [Unknown]
